FAERS Safety Report 9108473 (Version 7)
Quarter: 2014Q1

REPORT INFORMATION
  Report Type: Report from Study
  Country: FR (occurrence: FR)
  Receive Date: 20130222
  Receipt Date: 20140304
  Transmission Date: 20141002
  Serious: Yes (Hospitalization)
  Sender: FDA-Public Use
  Company Number: FR-TEVA-385957USA

PATIENT
  Age: 80 Year
  Sex: Male

DRUGS (11)
  1. BENDAMUSTINE [Suspect]
     Indication: MANTLE CELL LYMPHOMA
     Route: 041
     Dates: start: 20121005, end: 20121231
  2. BENDAMUSTINE [Suspect]
     Route: 041
     Dates: start: 20130301, end: 20130302
  3. MABTHERA [Suspect]
     Indication: MANTLE CELL LYMPHOMA
     Route: 041
     Dates: start: 20121005, end: 20121231
  4. MABTHERA [Suspect]
     Route: 041
     Dates: start: 20130301
  5. VELCADE [Suspect]
     Indication: MANTLE CELL LYMPHOMA
     Route: 041
  6. VELCADE [Suspect]
     Route: 041
     Dates: start: 20130301
  7. CORTICOSTEROID NOS [Suspect]
     Indication: MANTLE CELL LYMPHOMA
     Route: 048
     Dates: start: 20121005, end: 20121231
  8. METHYLPREDNISOLONE [Suspect]
     Route: 042
     Dates: start: 20121005
  9. DIFFU K [Concomitant]
  10. LASILIX [Concomitant]
  11. ZELITREX [Concomitant]

REACTIONS (3)
  - Infectious pleural effusion [Recovering/Resolving]
  - Pulmonary embolism [Recovered/Resolved with Sequelae]
  - Atelectasis [Recovering/Resolving]
